FAERS Safety Report 5808002-5 (Version None)
Quarter: 2008Q3

REPORT INFORMATION
  Report Type: 
  Country: None (occurrence: None)
  Receive Date: 20080711
  Receipt Date: 20080604
  Transmission Date: 20090109
  Serious: Yes (Other)
  Sender: FDA-Public Use
  Company Number: BR-PFIZER INC-2008048250

PATIENT
  Sex: Female
  Weight: 64 kg

DRUGS (3)
  1. LIPITOR [Suspect]
     Indication: BLOOD CHOLESTEROL
     Route: 048
  2. CARDIZEM [Concomitant]
  3. SOMALGIN [Concomitant]

REACTIONS (1)
  - VISUAL IMPAIRMENT [None]
